FAERS Safety Report 5004550-9 (Version None)
Quarter: 2006Q2

REPORT INFORMATION
  Report Type: 
  Country: None (occurrence: None)
  Receive Date: 20060517
  Receipt Date: 20051115
  Transmission Date: 20061013
  Serious: Yes (Hospitalization, Other)
  Sender: FDA-Public Use
  Company Number: US-BRISTOL-MYERS SQUIBB COMPANY-13189949

PATIENT
  Age: 14 Year
  Sex: Female

DRUGS (3)
  1. ARIPIPRAZOLE [Suspect]
     Indication: SCHIZOPHRENIA
     Dosage: NON-COMPLIANCE SINCE 30-OCT-2005; DISCHARGED ON 15 MG DAILY
     Route: 048
     Dates: start: 20050624
  2. ARIPIPRAZOLE [Suspect]
     Indication: BIPOLAR DISORDER
     Dosage: NON-COMPLIANCE SINCE 30-OCT-2005; DISCHARGED ON 15 MG DAILY
     Route: 048
     Dates: start: 20050624
  3. MARIJUANA [Suspect]

REACTIONS (3)
  - AGGRESSION [None]
  - HOMICIDAL IDEATION [None]
  - SUICIDAL IDEATION [None]
